FAERS Safety Report 17205546 (Version 2)
Quarter: 2025Q3

REPORT INFORMATION
  Report Type: Spontaneous
  Country: EU (occurrence: EU)
  Receive Date: 20191227
  Receipt Date: 20250811
  Transmission Date: 20251021
  Serious: Yes (Life-Threatening, Hospitalization, Other)
  Sender: ROCHE
  Company Number: EU-BAYER-2019-212991

PATIENT
  Age: 32 Year
  Sex: Male

DRUGS (12)
  1. MYCOPHENOLATE MOFETIL [Suspect]
     Active Substance: MYCOPHENOLATE MOFETIL
     Indication: Product used for unknown indication
     Route: 065
  2. MYCOPHENOLATE MOFETIL [Suspect]
     Active Substance: MYCOPHENOLATE MOFETIL
     Route: 065
  3. CYCLOPHOSPHAMIDE [Suspect]
     Active Substance: CYCLOPHOSPHAMIDE
     Indication: Product used for unknown indication
     Route: 065
  4. CYCLOPHOSPHAMIDE [Suspect]
     Active Substance: CYCLOPHOSPHAMIDE
     Route: 065
  5. SORAFENIB [Suspect]
     Active Substance: SORAFENIB
     Indication: Acute myeloid leukaemia recurrent
     Route: 065
  6. TACROLIMUS [Suspect]
     Active Substance: TACROLIMUS
     Indication: Product used for unknown indication
     Route: 065
  7. TACROLIMUS [Suspect]
     Active Substance: TACROLIMUS
     Route: 065
  8. VANCOMYCIN [Concomitant]
     Active Substance: VANCOMYCIN
  9. MICAFUNGIN [Concomitant]
     Active Substance: MICAFUNGIN SODIUM
  10. PIPERACILLIN SODIUM\TAZOBACTAM SODIUM [Concomitant]
     Active Substance: PIPERACILLIN SODIUM\TAZOBACTAM SODIUM
  11. AZACITIDINE [Concomitant]
     Active Substance: AZACITIDINE
  12. LEVOFLOXACIN [Concomitant]
     Active Substance: LEVOFLOXACIN

REACTIONS (5)
  - Aspergillus infection [Unknown]
  - Acute graft versus host disease in skin [Unknown]
  - Venoocclusive disease [Unknown]
  - Graft versus host disease in lung [Unknown]
  - Bronchopulmonary aspergillosis [Recovered/Resolved]
